FAERS Safety Report 17910386 (Version 4)
Quarter: 2022Q2

REPORT INFORMATION
  Report Type: Spontaneous
  Country: US (occurrence: US)
  Receive Date: 20200618
  Receipt Date: 20220401
  Transmission Date: 20220721
  Serious: Yes (Hospitalization, Other)
  Sender: FDA-Public Use
  Company Number: US-GILEAD-2020-0473224

PATIENT
  Age: 47 Year
  Sex: Male
  Weight: 53.07 kg

DRUGS (46)
  1. TRUVADA [Suspect]
     Active Substance: EMTRICITABINE\TENOFOVIR DISOPROXIL FUMARATE
     Indication: HIV infection
     Dosage: UNK
     Route: 048
     Dates: start: 2004, end: 201906
  2. TRUVADA [Suspect]
     Active Substance: EMTRICITABINE\TENOFOVIR DISOPROXIL FUMARATE
     Dosage: UNK
     Route: 048
     Dates: start: 2004, end: 20140912
  3. TRUVADA [Suspect]
     Active Substance: EMTRICITABINE\TENOFOVIR DISOPROXIL FUMARATE
     Dosage: UNK
     Route: 048
     Dates: start: 20140912, end: 20190320
  4. BIKTARVY [Concomitant]
     Active Substance: BICTEGRAVIR SODIUM\EMTRICITABINE\TENOFOVIR ALAFENAMIDE FUMARATE
  5. ACETAMINOPHEN [Concomitant]
     Active Substance: ACETAMINOPHEN
  6. ACYCLOVIR [Concomitant]
     Active Substance: ACYCLOVIR
  7. BACTRIM [Concomitant]
     Active Substance: SULFAMETHOXAZOLE\TRIMETHOPRIM
  8. CORTISONE [Concomitant]
     Active Substance: CORTISONE
  9. FAMOTIDINE [Concomitant]
     Active Substance: FAMOTIDINE
  10. FLOMAX [Concomitant]
     Active Substance: TAMSULOSIN HYDROCHLORIDE
  11. LOVENOX [Concomitant]
     Active Substance: ENOXAPARIN SODIUM
  12. VANCOMYCIN [Concomitant]
     Active Substance: VANCOMYCIN
  13. EPIVIR [Concomitant]
     Active Substance: LAMIVUDINE
     Indication: HIV infection
  14. EPZICOM [Concomitant]
     Active Substance: ABACAVIR SULFATE\LAMIVUDINE
     Indication: HIV infection
  15. LEXIVA [Concomitant]
     Active Substance: FOSAMPRENAVIR CALCIUM
     Indication: HIV infection
  16. NORVIR [Concomitant]
     Active Substance: RITONAVIR
     Indication: HIV infection
  17. PREZISTA [Concomitant]
     Active Substance: DARUNAVIR ETHANOLATE
     Indication: HIV infection
  18. RETROVIR [Concomitant]
     Active Substance: ZIDOVUDINE
  19. SUSTIVA [Concomitant]
     Active Substance: EFAVIRENZ
     Indication: HIV infection
  20. ENALAPRIL [Concomitant]
     Active Substance: ENALAPRIL
  21. ATIVAN [Concomitant]
     Active Substance: LORAZEPAM
  22. HYDROCORTISONE [Concomitant]
     Active Substance: HYDROCORTISONE
  23. PERIACTIN [Concomitant]
     Active Substance: CYPROHEPTADINE HYDROCHLORIDE
  24. MEGACE [Concomitant]
     Active Substance: MEGESTROL ACETATE
  25. PAXIL [Concomitant]
     Active Substance: PAROXETINE HYDROCHLORIDE
  26. MARINOL [Concomitant]
     Active Substance: DRONABINOL
  27. CIALIS [Concomitant]
     Active Substance: TADALAFIL
  28. FINASTERIDE [Concomitant]
     Active Substance: FINASTERIDE
  29. ASPIRIN [Concomitant]
     Active Substance: ASPIRIN
  30. DIFLUCAN [Concomitant]
     Active Substance: FLUCONAZOLE
  31. IBUPROFEN [Concomitant]
     Active Substance: IBUPROFEN
  32. NICOTINE TRANSDERMAL SYSTEM [Concomitant]
     Active Substance: NICOTINE
  33. DRONABINOL [Concomitant]
     Active Substance: DRONABINOL
  34. ARANESP [Concomitant]
     Active Substance: DARBEPOETIN ALFA
  35. EPOGEN [Concomitant]
     Active Substance: ERYTHROPOIETIN
  36. VENOFER [Concomitant]
     Active Substance: IRON SUCROSE
  37. CLONIDINE [Concomitant]
     Active Substance: CLONIDINE
  38. DIPHENHYDRAMINE [Concomitant]
     Active Substance: DIPHENHYDRAMINE
  39. GASTROVIEW [Concomitant]
  40. LOPRESSOR [Concomitant]
     Active Substance: METOPROLOL TARTRATE
  41. MORPHINE [Concomitant]
     Active Substance: MORPHINE
  42. TEMAZEPAM [Concomitant]
     Active Substance: TEMAZEPAM
  43. ALUMINUM HYDROXIDE\MAGNESIUM CARBONATE [Concomitant]
     Active Substance: ALUMINUM HYDROXIDE\MAGNESIUM CARBONATE
  44. INSULIN NOS [Concomitant]
     Active Substance: INSULIN NOS
  45. NITROGLYCERIN [Concomitant]
     Active Substance: NITROGLYCERIN
  46. FOLIC ACID [Concomitant]
     Active Substance: FOLIC ACID

REACTIONS (19)
  - Chronic kidney disease [Not Recovered/Not Resolved]
  - Multiple fractures [Unknown]
  - Ankle fracture [Recovered/Resolved]
  - Chronic kidney disease [Not Recovered/Not Resolved]
  - Tibia fracture [Recovered/Resolved]
  - Ankle fracture [Unknown]
  - End stage renal disease [Not Recovered/Not Resolved]
  - Fibula fracture [Recovered/Resolved]
  - Foot fracture [Recovered/Resolved]
  - Tibia fracture [Recovered/Resolved]
  - Renal failure [Unknown]
  - Acute kidney injury [Recovered/Resolved]
  - Acute kidney injury [Recovered/Resolved]
  - Acute kidney injury [Recovered/Resolved]
  - Emotional distress [Unknown]
  - Mobility decreased [Not Recovered/Not Resolved]
  - Musculoskeletal disorder [Not Recovered/Not Resolved]
  - Fatigue [Not Recovered/Not Resolved]
  - Pain [Unknown]

NARRATIVE: CASE EVENT DATE: 20110311
